FAERS Safety Report 14224037 (Version 1)
Quarter: 2017Q4

REPORT INFORMATION
  Report Type: Spontaneous
  Country: US (occurrence: US)
  Receive Date: 20171123
  Receipt Date: 20171123
  Transmission Date: 20180321
  Serious: Yes (Hospitalization, Other)
  Sender: FDA-Public Use
  Company Number: None

PATIENT
  Age: 72 Year
  Sex: Male
  Weight: 72.9 kg

DRUGS (8)
  1. LEVOTHYROXINE. [Concomitant]
     Active Substance: LEVOTHYROXINE
  2. LOSARTAN. [Concomitant]
     Active Substance: LOSARTAN
  3. FERRAPLUS 90 [Concomitant]
     Active Substance: ASCORBIC ACID\CYANOCOBALAMIN\DOCUSATE SODIUM\FOLIC ACID\IRON
  4. OLANZAPINE. [Concomitant]
     Active Substance: OLANZAPINE
  5. METOPROLOL SUCCINATE. [Concomitant]
     Active Substance: METOPROLOL SUCCINATE
  6. XARELTO [Suspect]
     Active Substance: RIVAROXABAN
     Indication: THROMBOSIS PROPHYLAXIS
     Dates: end: 20170731
  7. DEPAKOTE [Concomitant]
     Active Substance: DIVALPROEX SODIUM
  8. CLIMAX CONTROL BENZOCAINE [Concomitant]
     Active Substance: BENZOCAINE

REACTIONS (5)
  - Increased tendency to bruise [None]
  - Cognitive disorder [None]
  - Contusion [None]
  - Haematoma [None]
  - Skin haemorrhage [None]

NARRATIVE: CASE EVENT DATE: 20170731
